FAERS Safety Report 8514270 (Version 3)
Quarter: 2012Q4

REPORT INFORMATION
  Report Type: 
  Country: EC (occurrence: EC)
  Receive Date: 20120416
  Receipt Date: 20121101
  Transmission Date: 20130627
  Serious: Yes (Hospitalization, Other)
  Sender: FDA-Public Use
  Company Number: PHHY2012EC030950

PATIENT
  Age: 74 None
  Sex: Female

DRUGS (8)
  1. DIOVAN [Suspect]
     Indication: HYPERTENSION
     Dosage: 320 mg, daily
     Route: 048
     Dates: start: 2002, end: 20120322
  2. DIOVAN [Suspect]
     Dosage: 160 mg, daily
     Route: 048
     Dates: start: 20120323, end: 20120403
  3. DIOVAN [Suspect]
     Dosage: 80 mg, daily
     Route: 048
     Dates: start: 20120404, end: 201206
  4. CAPOTEN [Concomitant]
     Dosage: 50 mg
     Route: 060
  5. NORVASC [Concomitant]
     Dosage: 10 mg
  6. PLENACOR [Concomitant]
     Dosage: 50 mg
  7. ALEVIAN DUO [Concomitant]
     Dosage: UNK
  8. ALDACTONE [Concomitant]
     Dosage: 25 mg

REACTIONS (11)
  - Neurodegenerative disorder [Unknown]
  - Cerebral calcification [Unknown]
  - Rectal haemorrhage [Unknown]
  - Palpitations [Unknown]
  - Malaise [Unknown]
  - Gastritis [Unknown]
  - Gastritis atrophic [Unknown]
  - Large intestine polyp [Unknown]
  - Hypertension [Unknown]
  - Hypotension [Unknown]
  - Weight decreased [Unknown]
